FAERS Safety Report 9492340 (Version 2)
Quarter: 2015Q2

REPORT INFORMATION
  Report Type: Spontaneous
  Country: AR (occurrence: AR)
  Receive Date: 20130830
  Receipt Date: 20150515
  Transmission Date: 20150821
  Serious: Yes (Other)
  Sender: FDA-Public Use
  Company Number: PHHY2013AR092419

PATIENT
  Age: 47 Year
  Sex: Male

DRUGS (2)
  1. RIBAVIRIN. [Suspect]
     Active Substance: RIBAVIRIN
     Indication: CHRONIC HEPATITIS C
     Dosage: 1200 MG, QD
     Route: 065
  2. PEGINTERFERON ALFA-2B [Concomitant]
     Active Substance: PEGINTERFERON ALFA-2B
     Indication: CHRONIC HEPATITIS C
     Dosage: 120 UG, QW
     Route: 065

REACTIONS (7)
  - Blister [Recovered/Resolved]
  - Skin erosion [Recovered/Resolved]
  - Scar [Recovered/Resolved]
  - Haemolysis [Unknown]
  - Porphyria non-acute [Unknown]
  - Photosensitivity reaction [Unknown]
  - Iron overload [Unknown]
